FAERS Safety Report 14376250 (Version 3)
Quarter: 2018Q1

REPORT INFORMATION
  Report Type: Report from Study
  Country: US (occurrence: US)
  Receive Date: 20180111
  Receipt Date: 20180131
  Transmission Date: 20180509
  Serious: Yes (Hospitalization, Other)
  Sender: FDA-Public Use
  Company Number: US-JNJFOC-20180106684

PATIENT
  Sex: Female
  Weight: 110.22 kg

DRUGS (4)
  1. XARELTO [Suspect]
     Active Substance: RIVAROXABAN
     Indication: CEREBROVASCULAR ACCIDENT PROPHYLAXIS
     Route: 048
     Dates: start: 2014
  2. XARELTO [Suspect]
     Active Substance: RIVAROXABAN
     Indication: ATRIAL FIBRILLATION
     Route: 048
     Dates: start: 2014
  3. XARELTO [Suspect]
     Active Substance: RIVAROXABAN
     Indication: ATRIAL FIBRILLATION
     Route: 048
     Dates: end: 2014
  4. XARELTO [Suspect]
     Active Substance: RIVAROXABAN
     Indication: CEREBROVASCULAR ACCIDENT PROPHYLAXIS
     Route: 048
     Dates: end: 2014

REACTIONS (14)
  - Acute kidney injury [Recovering/Resolving]
  - Macular degeneration [Not Recovered/Not Resolved]
  - Hypoacusis [Not Recovered/Not Resolved]
  - Product lot number issue [Unknown]
  - Haemorrhage [Unknown]
  - Pericarditis constrictive [Unknown]
  - Tremor [Unknown]
  - Skin ulcer [Recovered/Resolved]
  - Sinusitis [Not Recovered/Not Resolved]
  - Ovarian cancer [Recovered/Resolved]
  - Cataract [Not Recovered/Not Resolved]
  - Epistaxis [Recovered/Resolved]
  - Skin fissures [Recovered/Resolved]
  - Memory impairment [Not Recovered/Not Resolved]

NARRATIVE: CASE EVENT DATE: 2014
